FAERS Safety Report 8080378 (Version 25)
Quarter: 2014Q2

REPORT INFORMATION
  Report Type: Spontaneous
  Country: US (occurrence: US)
  Receive Date: 20110808
  Receipt Date: 20140609
  Transmission Date: 20141212
  Serious: Yes (Other)
  Sender: FDA-Public Use
  Company Number: PHEH2011US00517

PATIENT
  Sex: Female

DRUGS (14)
  1. ZOMETA [Suspect]
     Indication: PLASMA CELL MYELOMA
     Dosage: UNK UKN, UNK
     Route: 042
     Dates: start: 200312, end: 200901
  2. AREDIA [Suspect]
     Dosage: UNK UKN, UNK
     Route: 042
     Dates: end: 200901
  3. SINGULAIR [Concomitant]
  4. AMBIEN [Concomitant]
  5. FLEXERIL [Concomitant]
  6. PREMARIN [Concomitant]
  7. GLUCOTROL [Concomitant]
  8. ZOLOFT [Concomitant]
  9. NEURONTIN [Concomitant]
  10. ACCUPRIL [Concomitant]
  11. ATENOLOL [Concomitant]
  12. BECONASE [Concomitant]
  13. CYMBALTA [Concomitant]
  14. TOPAMAX [Concomitant]

REACTIONS (125)
  - Dysphagia [Unknown]
  - Face oedema [Unknown]
  - Spinal compression fracture [Unknown]
  - Atelectasis [Unknown]
  - Peripheral vascular disorder [Unknown]
  - Ear pain [Unknown]
  - Neck pain [Unknown]
  - Peripheral swelling [Unknown]
  - Paraesthesia [Unknown]
  - Hypoaesthesia [Unknown]
  - Hyperhidrosis [Unknown]
  - Chest pain [Unknown]
  - Insomnia [Unknown]
  - Anxiety [Unknown]
  - Gastrooesophageal reflux disease [Unknown]
  - Back pain [Unknown]
  - Dysgeusia [Unknown]
  - Weight decreased [Unknown]
  - Headache [Unknown]
  - Vision blurred [Unknown]
  - Productive cough [Unknown]
  - Diarrhoea [Unknown]
  - Muscle spasms [Unknown]
  - Tinnitus [Unknown]
  - Pain in extremity [Unknown]
  - Abdominal discomfort [Unknown]
  - Osteonecrosis of jaw [Unknown]
  - Pain in jaw [Unknown]
  - Infection [Unknown]
  - Deformity [Unknown]
  - Injury [Unknown]
  - Emotional distress [Unknown]
  - Exposed bone in jaw [Unknown]
  - Purulent discharge [Unknown]
  - Impaired healing [Unknown]
  - Osteitis [Unknown]
  - Breath odour [Unknown]
  - Primary sequestrum [Unknown]
  - Paralysis [Unknown]
  - Osteoporosis [Unknown]
  - Asthma [Unknown]
  - Depression [Unknown]
  - Fall [Unknown]
  - Migraine [Unknown]
  - Bronchitis [Unknown]
  - Allergic respiratory disease [Unknown]
  - Cardiovascular disorder [Unknown]
  - Peptic ulcer [Unknown]
  - Arthritis [Unknown]
  - Tooth infection [Unknown]
  - Gastrointestinal disorder [Unknown]
  - Spinal osteoarthritis [Unknown]
  - Dental caries [Unknown]
  - Angina pectoris [Unknown]
  - Tooth disorder [Unknown]
  - Periodontitis [Unknown]
  - Osteolysis [Unknown]
  - Paraesthesia oral [Unknown]
  - Tenderness [Unknown]
  - Sinusitis [Unknown]
  - Hiatus hernia [Unknown]
  - Emphysema [Unknown]
  - Pulmonary granuloma [Unknown]
  - Pulmonary calcification [Unknown]
  - Chronic obstructive pulmonary disease [Unknown]
  - Dyspnoea exertional [Unknown]
  - Varicose vein [Unknown]
  - Incontinence [Unknown]
  - Bone erosion [Unknown]
  - Gingival swelling [Unknown]
  - Tooth fracture [Unknown]
  - Osteoradionecrosis [Unknown]
  - Pulmonary embolism [Unknown]
  - Hyperthyroidism [Unknown]
  - Pulmonary hypertension [Unknown]
  - Carpal tunnel syndrome [Unknown]
  - Menopausal symptoms [Unknown]
  - Sciatica [Unknown]
  - Mouth ulceration [Unknown]
  - Fibromyalgia [Unknown]
  - Pharyngitis [Unknown]
  - Peripheral arterial occlusive disease [Unknown]
  - Dyslipidaemia [Unknown]
  - Herpes simplex [Unknown]
  - Pneumonia [Unknown]
  - Hypergammaglobulinaemia benign monoclonal [Unknown]
  - Plasmacytosis [Unknown]
  - Facet joint syndrome [Unknown]
  - Chondromalacia [Unknown]
  - Meniscus cyst [Unknown]
  - Meniscal degeneration [Unknown]
  - Arthralgia [Unknown]
  - Eye injury [Unknown]
  - Cataract [Unknown]
  - Lenticular opacities [Unknown]
  - Visual acuity reduced [Unknown]
  - Conjunctivitis viral [Unknown]
  - Cor pulmonale chronic [Unknown]
  - Bronchiolitis [Unknown]
  - Lymphoma [Unknown]
  - Stomatitis [Unknown]
  - Limb asymmetry [Unknown]
  - Acute coronary syndrome [Unknown]
  - Nasal septum deviation [Unknown]
  - Hand fracture [Unknown]
  - Osteoarthritis [Unknown]
  - Gingival bleeding [Unknown]
  - Chronic gastritis [Unknown]
  - Complex regional pain syndrome [Unknown]
  - Cervical spinal stenosis [Unknown]
  - Intervertebral disc protrusion [Unknown]
  - Vertebral osteophyte [Unknown]
  - Deafness [Unknown]
  - Pleural fibrosis [Unknown]
  - Urinary tract infection [Unknown]
  - Cervical vertebral fracture [Unknown]
  - Tooth abscess [Unknown]
  - Actinomycosis [Unknown]
  - Dizziness [Unknown]
  - Vertigo [Unknown]
  - Vitreous detachment [Unknown]
  - Gingivitis [Unknown]
  - Bone lesion [Unknown]
  - Bone fragmentation [Unknown]
  - Osteomyelitis [Unknown]
